FAERS Safety Report 21578079 (Version 1)
Quarter: 2022Q4

REPORT INFORMATION
  Report Type: Spontaneous
  Country: TR (occurrence: TR)
  Receive Date: 20221110
  Receipt Date: 20221110
  Transmission Date: 20230112
  Serious: Yes (Other)
  Sender: FDA-Public Use
  Company Number: TR-BAYER-2022A154654

PATIENT
  Age: 35 Year
  Sex: Female

DRUGS (1)
  1. NAPROXEN SODIUM [Suspect]
     Active Substance: NAPROXEN SODIUM
     Indication: Headache
     Dosage: 550 MG, ONCE

REACTIONS (6)
  - Substance-induced psychotic disorder [Recovered/Resolved]
  - Hallucination, auditory [Recovered/Resolved]
  - Psychomotor hyperactivity [Recovered/Resolved]
  - Dysphoria [Recovered/Resolved]
  - Persecutory delusion [Recovered/Resolved]
  - Delusion of reference [Recovered/Resolved]
